FAERS Safety Report 26007849 (Version 1)
Quarter: 2025Q4

REPORT INFORMATION
  Report Type: Spontaneous
  Country: US (occurrence: US)
  Receive Date: 20251106
  Receipt Date: 20251106
  Transmission Date: 20260118
  Serious: Yes (Life-Threatening, Hospitalization)
  Sender: MYLAN
  Company Number: US-MYLANLABS-2025M1094193

PATIENT
  Sex: Female

DRUGS (3)
  1. EPINEPHRINE [Suspect]
     Active Substance: EPINEPHRINE
     Indication: Contrast media allergy
     Dosage: 0.3 MILLIGRAM
  2. EPINEPHRINE [Suspect]
     Active Substance: EPINEPHRINE
     Indication: Contrast media allergy
     Dosage: UNK
  3. SALINE [Concomitant]
     Active Substance: SODIUM CHLORIDE
     Indication: Vehicle solution use
     Dosage: 500 MILLILITER

REACTIONS (1)
  - Cardiac arrest [Recovered/Resolved]
